FAERS Safety Report 4323853-4 (Version None)
Quarter: 2004Q1

REPORT INFORMATION
  Report Type: 
  Country: None (occurrence: None)
  Receive Date: 20040323
  Receipt Date: 20040308
  Transmission Date: 20041129
  Serious: Yes (Hospitalization, Other)
  Sender: FDA-Public Use
  Company Number: 700796

PATIENT
  Age: 68 Year
  Sex: Female
  Weight: 54.4316 kg

DRUGS (16)
  1. AMEVIVE [Suspect]
     Indication: PSORIASIS
     Dosage: 15 MG NA IM
     Dates: start: 20030401
  2. PRILOSEC [Concomitant]
  3. ATIVAN [Concomitant]
  4. TIAZAC [Concomitant]
  5. AVAPRO [Concomitant]
  6. DETROL [Concomitant]
  7. ACCOLATE [Concomitant]
  8. ZOCOR [Concomitant]
  9. SYNTHROID [Concomitant]
  10. PLAVIX [Concomitant]
  11. ISOSORBIDE DINITRATE [Concomitant]
  12. PRED FORTE [Concomitant]
  13. CLOBETASOL [Concomitant]
  14. ASPIRIN [Concomitant]
  15. IRON SULFATETHIAMIN COMPOUND TAB [Concomitant]
  16. VITAMIN E [Concomitant]

REACTIONS (23)
  - ANAEMIA [None]
  - ARTHRALGIA [None]
  - ASTHENIA [None]
  - BLOOD PRESSURE DIASTOLIC DECREASED [None]
  - BODY TEMPERATURE DECREASED [None]
  - BRADYCARDIA [None]
  - CARDIAC FAILURE CONGESTIVE [None]
  - CEREBROVASCULAR ACCIDENT [None]
  - CHEST PAIN [None]
  - DECREASED APPETITE [None]
  - DEHYDRATION [None]
  - DEPRESSED LEVEL OF CONSCIOUSNESS [None]
  - HYPERKALAEMIA [None]
  - HYPERSOMNIA [None]
  - NAUSEA [None]
  - OXYGEN SATURATION DECREASED [None]
  - PANCREATIC DISORDER [None]
  - RENAL DISORDER [None]
  - RENAL FAILURE ACUTE [None]
  - RESPIRATORY RATE INCREASED [None]
  - SLEEP DISORDER [None]
  - SUPRAVENTRICULAR EXTRASYSTOLES [None]
  - VOMITING [None]
